FAERS Safety Report 5568989-5 (Version None)
Quarter: 2007Q4

REPORT INFORMATION
  Report Type: 
  Country: None (occurrence: None)
  Receive Date: 20071220
  Receipt Date: 20070424
  Transmission Date: 20080405
  Serious: No
  Sender: FDA-Public Use
  Company Number: A0648760A

PATIENT
  Sex: Male

DRUGS (2)
  1. AVODART [Suspect]
     Indication: URINARY TRACT OBSTRUCTION
     Route: 048
  2. FLOMAX [Suspect]
     Indication: URINARY TRACT OBSTRUCTION
     Route: 048

REACTIONS (1)
  - DIZZINESS [None]
